FAERS Safety Report 4767621-8 (Version None)
Quarter: 2005Q3

REPORT INFORMATION
  Report Type: 
  Country: None (occurrence: None)
  Receive Date: 20050913
  Receipt Date: 20050819
  Transmission Date: 20060218
  Serious: Yes (Hospitalization)
  Sender: FDA-Public Use
  Company Number: GB-BRISTOL-MYERS SQUIBB COMPANY-13084389

PATIENT
  Age: 61 Year
  Sex: Female
  Weight: 84 kg

DRUGS (10)
  1. CARBOPLATIN [Suspect]
     Indication: NON-SMALL CELL LUNG CANCER
     Route: 042
     Dates: start: 20050616, end: 20050616
  2. GEMCITABINE HCL [Suspect]
     Indication: NON-SMALL CELL LUNG CANCER
     Route: 042
     Dates: start: 20050616, end: 20050616
  3. BLINDED: THALIDOMIDE [Suspect]
     Indication: NON-SMALL CELL LUNG CANCER
     Route: 048
     Dates: start: 20050622, end: 20050728
  4. FLUOXETINE [Concomitant]
     Route: 048
     Dates: start: 20040601, end: 20050728
  5. DICLOFENAC [Concomitant]
     Route: 048
     Dates: start: 19900101
  6. PREMARIN [Concomitant]
     Indication: HORMONE REPLACEMENT THERAPY
     Route: 048
     Dates: start: 19950601
  7. DEXAMETHASONE [Concomitant]
     Indication: PREMEDICATION
     Route: 048
     Dates: start: 20050616, end: 20050620
  8. METOCLOPRAMIDE [Concomitant]
     Indication: PREMEDICATION
     Route: 048
     Dates: start: 20050616, end: 20050622
  9. LACTULOSE [Concomitant]
     Route: 048
     Dates: start: 20050630
  10. PARACETAMOL [Concomitant]
     Dates: start: 20050630

REACTIONS (30)
  - ABDOMINAL PAIN UPPER [None]
  - ARTHRALGIA [None]
  - BACK PAIN [None]
  - BLOOD ALKALINE PHOSPHATASE INCREASED [None]
  - BLOOD CREATININE INCREASED [None]
  - BLOOD SODIUM DECREASED [None]
  - BODY TEMPERATURE INCREASED [None]
  - C-REACTIVE PROTEIN INCREASED [None]
  - COUGH [None]
  - DECREASED APPETITE [None]
  - DEHYDRATION [None]
  - EOSINOPHILIA [None]
  - FLUID INTAKE REDUCED [None]
  - HAEMOGLOBIN DECREASED [None]
  - HEPATIC PAIN [None]
  - INFECTION [None]
  - LEUKOCYTOSIS [None]
  - MALAISE [None]
  - MONOCYTOSIS [None]
  - MYALGIA [None]
  - NAUSEA [None]
  - NEUTROPHIL PERCENTAGE DECREASED [None]
  - PHARYNGOLARYNGEAL PAIN [None]
  - PLATELET COUNT DECREASED [None]
  - POLLAKIURIA [None]
  - PRODUCTIVE COUGH [None]
  - PYREXIA [None]
  - SPUTUM DISCOLOURED [None]
  - URINARY TRACT INFECTION [None]
  - WHITE BLOOD CELL COUNT DECREASED [None]
